FAERS Safety Report 5188210-X (Version None)
Quarter: 2006Q4

REPORT INFORMATION
  Report Type: 
  Country: None (occurrence: None)
  Receive Date: 20061221
  Receipt Date: 20061204
  Transmission Date: 20070319
  Serious: Yes (Other)
  Sender: FDA-Public Use
  Company Number: US-ROCHE-474503

PATIENT
  Sex: Female

DRUGS (1)
  1. CELLCEPT [Suspect]
     Indication: DRUG USE FOR UNKNOWN INDICATION
     Route: 065
     Dates: start: 20030615, end: 20030615

REACTIONS (4)
  - C-REACTIVE PROTEIN INCREASED [None]
  - SYNOVIAL CYST [None]
  - SYNOVIAL RUPTURE [None]
  - SYNOVITIS [None]
